FAERS Safety Report 9670871 (Version 2)
Quarter: 2013Q4

REPORT INFORMATION
  Report Type: Spontaneous
  Country: CH (occurrence: CH)
  Receive Date: 20131106
  Receipt Date: 20131106
  Transmission Date: 20140711
  Serious: Yes (Other)
  Sender: FDA-Public Use
  Company Number: PHHY2013CH118732

PATIENT
  Age: 67 Year
  Sex: Female

DRUGS (4)
  1. LETROZOLE [Suspect]
     Dosage: 2.5 MG, UNK
     Route: 048
  2. VALSARTAN [Concomitant]
     Dosage: 160 MG, UNK
  3. HYDROCHLOROTHIAZIDE [Concomitant]
     Dosage: 25 MG, UNK
  4. BISOPROLOL [Concomitant]
     Dosage: 5 MG, UNK

REACTIONS (11)
  - Tenosynovitis [Unknown]
  - Osteoarthritis [Unknown]
  - Arthralgia [Not Recovered/Not Resolved]
  - Musculoskeletal stiffness [Unknown]
  - Joint swelling [Unknown]
  - Local swelling [Unknown]
  - Joint crepitation [Unknown]
  - Mobility decreased [Unknown]
  - Nodal osteoarthritis [Unknown]
  - Synovitis [Unknown]
  - Erythema [Unknown]
